FAERS Safety Report 4349766-X (Version None)
Quarter: 2004Q2

REPORT INFORMATION
  Report Type: 
  Country: None (occurrence: None)
  Receive Date: 20040428
  Receipt Date: 20040420
  Transmission Date: 20050107
  Serious: Yes (Hospitalization, Other)
  Sender: FDA-Public Use
  Company Number: 001063

PATIENT
  Age: 39 Year
  Sex: Female
  Weight: 65.8 kg

DRUGS (4)
  1. KARIVA [Suspect]
     Indication: CONTRACEPTION
     Dosage: 1.00 TABLET, QD, ORAL
     Route: 048
     Dates: start: 20010101
  2. OXYCONTIN [Concomitant]
  3. CELEXA [Concomitant]
  4. PREVACID [Concomitant]

REACTIONS (4)
  - BREAST MASS [None]
  - GALACTORRHOEA [None]
  - METASTATIC MALIGNANT MELANOMA [None]
  - PANCREATITIS [None]
